FAERS Safety Report 9201530 (Version 2)
Quarter: 2013Q2

REPORT INFORMATION
  Report Type: Spontaneous
  Country: SE (occurrence: SE)
  Receive Date: 20130401
  Receipt Date: 20130403
  Transmission Date: 20140414
  Serious: Yes (Hospitalization, Other)
  Sender: FDA-Public Use
  Company Number: SE-PFIZER INC-2013098776

PATIENT
  Age: 77 Year
  Sex: Female

DRUGS (4)
  1. TOVIAZ [Suspect]
     Indication: HYPERTONIC BLADDER
     Dosage: 4 MG, 1X/DAY
     Route: 048
     Dates: end: 20130205
  2. METOPROLOL [Concomitant]
     Dosage: UNK
  3. LOMIR [Concomitant]
     Dosage: 2.5 MG, UNK
  4. TROMBYL [Concomitant]
     Dosage: 75 MG, UNK

REACTIONS (4)
  - Fall [Recovering/Resolving]
  - Dysarthria [Recovering/Resolving]
  - Balance disorder [Recovering/Resolving]
  - Cerebral disorder [Unknown]
